FAERS Safety Report 5931555-3 (Version None)
Quarter: 2008Q4

REPORT INFORMATION
  Report Type: 
  Country: None (occurrence: None)
  Receive Date: 20081027
  Receipt Date: 20081022
  Transmission Date: 20090506
  Serious: Yes (Life-Threatening, Hospitalization)
  Sender: FDA-Public Use
  Company Number: B0542922A

PATIENT
  Age: 96 Year
  Sex: Female
  Weight: 70 kg

DRUGS (10)
  1. ARIXTRA [Suspect]
     Indication: THROMBOSIS PROPHYLAXIS
     Dosage: 7.5MG PER DAY
     Route: 058
     Dates: start: 20081002, end: 20081012
  2. KARDEGIC [Suspect]
     Indication: DRUG USE FOR UNKNOWN INDICATION
     Dosage: 75MG PER DAY
     Route: 048
  3. LANTUS [Concomitant]
     Route: 065
  4. NOVORAPID [Concomitant]
     Route: 065
  5. LASIX [Concomitant]
     Route: 065
  6. EUPRESSYL [Concomitant]
     Route: 065
  7. BISOPROLOL FUMARATE [Concomitant]
     Route: 065
  8. NITRODERM [Concomitant]
     Route: 065
  9. TARDYFERON [Concomitant]
     Route: 065
  10. MICARDIS [Concomitant]
     Route: 065

REACTIONS (11)
  - ANAEMIA [None]
  - CEREBRAL HAEMORRHAGE [None]
  - CONFUSIONAL STATE [None]
  - CONVULSION [None]
  - DISTURBANCE IN ATTENTION [None]
  - EATING DISORDER [None]
  - GENERAL PHYSICAL HEALTH DETERIORATION [None]
  - HAEMATOMA [None]
  - INCORRECT DOSE ADMINISTERED [None]
  - RENAL FAILURE ACUTE [None]
  - SUBDURAL HAEMATOMA [None]
